FAERS Safety Report 14121291 (Version 1)
Quarter: 2017Q4

REPORT INFORMATION
  Report Type: Spontaneous
  Country: US (occurrence: US)
  Receive Date: 20171024
  Receipt Date: 20171024
  Transmission Date: 20180321
  Serious: No
  Sender: FDA-Public Use
  Company Number: US-MYLANLABS-2017M1057203

PATIENT
  Sex: Female

DRUGS (1)
  1. MIDNITE PM (BROMELAIN, MELATONIN, LEMON BALM, CHAMOMILE, LAVENDER) [Suspect]
     Active Substance: MELATONIN
     Indication: INITIAL INSOMNIA
     Dosage: UNK
     Route: 048
     Dates: start: 201708

REACTIONS (4)
  - Drug ineffective [Unknown]
  - Fatigue [Not Recovered/Not Resolved]
  - Somnolence [Not Recovered/Not Resolved]
  - Asthenia [Unknown]

NARRATIVE: CASE EVENT DATE: 201708
